FAERS Safety Report 10152783 (Version 1)
Quarter: 2014Q2

REPORT INFORMATION
  Report Type: Spontaneous
  Country: FR (occurrence: FR)
  Receive Date: 20140505
  Receipt Date: 20140505
  Transmission Date: 20141212
  Serious: Yes (Hospitalization)
  Sender: FDA-Public Use
  Company Number: FR-PFIZER INC-2014117241

PATIENT
  Age: 80 Year
  Sex: Female

DRUGS (13)
  1. EFFEXOR [Suspect]
     Dosage: 75 MG, 1X/DAY IN THE MORNING
     Route: 048
     Dates: start: 20131211, end: 20140302
  2. LAMICTAL [Suspect]
     Dosage: 50 MG, 1X/DAY IN THE EVENING
     Route: 048
     Dates: start: 20140113, end: 20140303
  3. NUTRITIONAL SUPPLEMENT [Suspect]
     Dosage: UNK
     Route: 048
     Dates: start: 20140108, end: 20140314
  4. OMEPRAZOLE [Concomitant]
     Dosage: UNK
  5. NORMACOL [Concomitant]
     Dosage: UNK
  6. ZOPICLONE [Concomitant]
     Dosage: UNK
  7. THERALENE [Concomitant]
     Dosage: UNK
  8. LEVOTHYROX [Concomitant]
     Dosage: UNK
  9. LEPTICUR [Concomitant]
     Dosage: UNK
  10. FORTIMEL [Concomitant]
     Dosage: UNK
  11. SANYRENE [Concomitant]
     Dosage: UNK
  12. NOZINAN [Concomitant]
     Dosage: UNK
  13. PARACETAMOL [Concomitant]
     Dosage: UNK

REACTIONS (7)
  - Urticaria [Recovered/Resolved]
  - Rash papular [Recovered/Resolved]
  - Pruritus [Recovered/Resolved]
  - Rash maculo-papular [Recovered/Resolved]
  - Oral disorder [Recovered/Resolved]
  - Acarodermatitis [Recovered/Resolved]
  - Pyrexia [Recovered/Resolved]
